FAERS Safety Report 6441822-5 (Version None)
Quarter: 2009Q4

REPORT INFORMATION
  Report Type: 
  Country: None (occurrence: None)
  Receive Date: 20091112
  Receipt Date: 20091027
  Transmission Date: 20100525
  Serious: Yes (Hospitalization)
  Sender: FDA-Public Use
  Company Number: A-US2007-18271

PATIENT
  Age: 60 Year
  Sex: Female

DRUGS (2)
  1. TRACLEER [Suspect]
     Indication: PULMONARY ARTERIAL HYPERTENSION
     Dosage: ORAL
     Route: 048
     Dates: start: 20020820
  2. REMODULIN (TREPROSTINIL) [Concomitant]

REACTIONS (11)
  - ASTHENIA [None]
  - CARDIAC FAILURE [None]
  - CATHETER SITE DISCHARGE [None]
  - CHEST PAIN [None]
  - DEVICE RELATED INFECTION [None]
  - DIARRHOEA [None]
  - DYSPNOEA [None]
  - LIVER FUNCTION TEST ABNORMAL [None]
  - PAIN [None]
  - PALPITATIONS [None]
  - SKIN WARM [None]
